FAERS Safety Report 25868276 (Version 3)
Quarter: 2025Q4

REPORT INFORMATION
  Report Type: Report from Study
  Country: EU (occurrence: EU)
  Receive Date: 20251001
  Receipt Date: 20251224
  Transmission Date: 20260118
  Serious: Yes (Other)
  Sender: TAKEDA
  Company Number: EU-TAKEDA-2025TUS084348

PATIENT
  Age: 42 Year
  Sex: Female

DRUGS (19)
  1. TEDUGLUTIDE [Suspect]
     Active Substance: TEDUGLUTIDE
     Indication: Short-bowel syndrome
     Dosage: 3 MILLIGRAM, QD
     Dates: start: 20180114, end: 20190117
  2. TEDUGLUTIDE [Suspect]
     Active Substance: TEDUGLUTIDE
     Dosage: 5 MILLIGRAM, QD
     Dates: start: 20210409, end: 20240418
  3. TEDUGLUTIDE [Suspect]
     Active Substance: TEDUGLUTIDE
     Dosage: 5 MILLIGRAM, 5/WEEK
     Dates: start: 20240418, end: 20240905
  4. TEDUGLUTIDE [Suspect]
     Active Substance: TEDUGLUTIDE
     Dosage: 5 MILLIGRAM, QD
     Dates: start: 20240906, end: 20250916
  5. TEDUGLUTIDE [Suspect]
     Active Substance: TEDUGLUTIDE
     Dosage: 5 MILLIGRAM, 5/WEEK
     Dates: start: 20250917, end: 20251010
  6. TEDUGLUTIDE [Suspect]
     Active Substance: TEDUGLUTIDE
     Dosage: 5 MILLIGRAM, 4/WEEK
     Dates: start: 20251111
  7. ESOMEPRAZOLE [Concomitant]
     Active Substance: ESOMEPRAZOLE
     Indication: Prophylaxis
     Dosage: 40 MILLIGRAM, BID
     Dates: start: 20181119, end: 20250401
  8. ESOMEPRAZOLE [Concomitant]
     Active Substance: ESOMEPRAZOLE
     Dosage: 20 MILLIGRAM, BID
     Dates: start: 20250402, end: 20250923
  9. DETREMIN [Concomitant]
     Indication: Vitamin supplementation
     Dosage: 4 GTT DROPS, QD
     Dates: start: 20231027
  10. Magnesium Meda [Concomitant]
     Indication: Mineral supplementation
     Dosage: 250 MILLIGRAM, BID
     Dates: start: 20191113, end: 20250923
  11. Behepan [Concomitant]
     Indication: Vitamin supplementation
     Dosage: 1 MILLIGRAM
  12. Folacin [Concomitant]
     Indication: Vitamin supplementation
     Dosage: 5 MILLIGRAM, 1/WEEK
     Dates: start: 20231027
  13. CALCIUM CARBONATE\CHOLECALCIFEROL [Concomitant]
     Active Substance: CALCIUM CARBONATE\CHOLECALCIFEROL
     Indication: Mineral supplementation
     Dosage: 500 MILLIGRAM, BID
     Dates: start: 20160217
  14. CALCIUM CARBONATE\CHOLECALCIFEROL [Concomitant]
     Active Substance: CALCIUM CARBONATE\CHOLECALCIFEROL
     Indication: Vitamin supplementation
  15. DIMETHICONE [Concomitant]
     Active Substance: DIMETHICONE
     Indication: Discomfort
     Dosage: UNK UNK, QID
     Dates: start: 202303
  16. SOLVEZINK [Concomitant]
     Indication: Blood zinc decreased
     Dosage: 45 MILLIGRAM
     Dates: start: 20240726, end: 20250401
  17. SOLVEZINK [Concomitant]
     Dosage: 45 MILLIGRAM
  18. LOPERAMIDE [Concomitant]
     Active Substance: LOPERAMIDE
     Indication: Diarrhoea
     Dosage: 2 MILLIGRAM
  19. SODIUM BICARBONATE [Concomitant]
     Active Substance: SODIUM BICARBONATE
     Indication: Blood sodium decreased
     Dosage: 2 GRAM, BID
     Dates: start: 20240418

REACTIONS (2)
  - Vaginal dysplasia [Not Recovered/Not Resolved]
  - Constipation [Not Recovered/Not Resolved]

NARRATIVE: CASE EVENT DATE: 20250407
